FAERS Safety Report 24059937 (Version 19)
Quarter: 2025Q1

REPORT INFORMATION
  Report Type: Spontaneous
  Country: US (occurrence: US)
  Receive Date: 20240708
  Receipt Date: 20250304
  Transmission Date: 20250409
  Serious: No
  Sender: PFIZER
  Company Number: US-PFIZER INC-202400206199

PATIENT
  Age: 12 Year
  Sex: Female
  Weight: 39.909 kg

DRUGS (4)
  1. GENOTROPIN [Suspect]
     Active Substance: SOMATROPIN
     Indication: Short stature
     Dosage: 1.8 MG, DAILY
     Route: 058
     Dates: start: 20240629
  2. GENOTROPIN [Suspect]
     Active Substance: SOMATROPIN
  3. GENOTROPIN [Suspect]
     Active Substance: SOMATROPIN
  4. GENOTROPIN [Suspect]
     Active Substance: SOMATROPIN

REACTIONS (10)
  - Injection site erythema [Unknown]
  - Drug dose omission by device [Unknown]
  - Poor quality product administered [Unknown]
  - Poor quality device used [Unknown]
  - Wrong technique in device usage process [Unknown]
  - Liquid product physical issue [Unknown]
  - Device leakage [Unknown]
  - Product packaging issue [Unknown]
  - Product physical issue [Unknown]
  - Device chemical property issue [Unknown]

NARRATIVE: CASE EVENT DATE: 20240701
